FAERS Safety Report 6091240-7 (Version None)
Quarter: 2009Q1

REPORT INFORMATION
  Report Type: 
  Country: None (occurrence: None)
  Receive Date: 20090220
  Receipt Date: 20090220
  Transmission Date: 20090719
  Serious: No
  Sender: FDA-Public Use
  Company Number: None

PATIENT
  Age: 33 Year
  Sex: Female
  Weight: 56.6996 kg

DRUGS (2)
  1. CYMBALTA [Suspect]
     Indication: POSTPARTUM DEPRESSION
     Dosage: 60MG  1 X PER DAY PO
     Route: 048
     Dates: start: 20050601, end: 20051001
  2. CYMBALTA [Suspect]
     Indication: POSTPARTUM DEPRESSION
     Dosage: 30 MG 1 X PER DAY PO
     Route: 048
     Dates: start: 20051001, end: 20060301

REACTIONS (37)
  - ABDOMINAL DISTENSION [None]
  - ANGER [None]
  - ANXIETY [None]
  - ARTHRALGIA [None]
  - ASTHENIA [None]
  - BLOOD BILIRUBIN INCREASED [None]
  - BONE PAIN [None]
  - CATARACT [None]
  - CHILLS [None]
  - CONVERSION DISORDER [None]
  - DEPRESSION [None]
  - DIZZINESS [None]
  - DYSPHEMIA [None]
  - FATIGUE [None]
  - FEELING ABNORMAL [None]
  - GASTROENTERITIS VIRAL [None]
  - GASTROOESOPHAGEAL REFLUX DISEASE [None]
  - HEADACHE [None]
  - HEAT RASH [None]
  - HEPATIC ENZYME ABNORMAL [None]
  - HEPATIC PAIN [None]
  - HEPATOMEGALY [None]
  - HYPERHIDROSIS [None]
  - INCREASED TENDENCY TO BRUISE [None]
  - IRRITABILITY [None]
  - MEMORY IMPAIRMENT [None]
  - MUSCLE TIGHTNESS [None]
  - MYALGIA [None]
  - MYOCARDIAL INFARCTION [None]
  - NIGHT SWEATS [None]
  - PAIN OF SKIN [None]
  - PARAESTHESIA [None]
  - PARAESTHESIA ORAL [None]
  - PRURITUS [None]
  - SPLENOMEGALY [None]
  - URTICARIA [None]
  - WITHDRAWAL SYNDROME [None]
